FAERS Safety Report 7236967-6 (Version None)
Quarter: 2011Q1

REPORT INFORMATION
  Report Type: 
  Country: None (occurrence: None)
  Receive Date: 20110121
  Receipt Date: 20110111
  Transmission Date: 20110831
  Serious: Yes (Hospitalization)
  Sender: FDA-Public Use
  Company Number: US-BIOGENIDEC-2010BI045261

PATIENT
  Age: 45 Year
  Sex: Female

DRUGS (2)
  1. AVONEX [Suspect]
     Route: 030
     Dates: end: 20071203
  2. AVONEX [Suspect]
     Indication: MULTIPLE SCLEROSIS
     Route: 030
     Dates: start: 20100115

REACTIONS (5)
  - BACK PAIN [None]
  - BLOOD POTASSIUM DECREASED [None]
  - DEPRESSION [None]
  - BLOOD COUNT ABNORMAL [None]
  - KIDNEY INFECTION [None]
